FAERS Safety Report 7091481-6 (Version None)
Quarter: 2010Q4

REPORT INFORMATION
  Report Type: 
  Country: None (occurrence: None)
  Receive Date: 20101109
  Receipt Date: 20101029
  Transmission Date: 20110411
  Serious: Yes (Other)
  Sender: FDA-Public Use
  Company Number: DE-JNJFOC-20101101200

PATIENT
  Sex: Female
  Weight: 68 kg

DRUGS (2)
  1. REMICADE [Suspect]
     Indication: ANKYLOSING SPONDYLITIS
     Dosage: 1-12 INFUSIONS
     Route: 042
  2. REMICADE [Suspect]
     Dosage: 13TH INFUSION
     Route: 042

REACTIONS (7)
  - DYSPHAGIA [None]
  - FLUSHING [None]
  - HEADACHE [None]
  - HYPERHIDROSIS [None]
  - INFUSION RELATED REACTION [None]
  - PARAESTHESIA [None]
  - TACHYCARDIA [None]
